FAERS Safety Report 5219533-3 (Version None)
Quarter: 2007Q1

REPORT INFORMATION
  Report Type: 
  Country: None (occurrence: None)
  Receive Date: 20070125
  Receipt Date: 20070117
  Transmission Date: 20070707
  Serious: Yes (Life-Threatening, Hospitalization, Other)
  Sender: FDA-Public Use
  Company Number: US-PFIZER INC-2007005158

PATIENT
  Sex: Male

DRUGS (3)
  1. EXUBERA [Suspect]
     Route: 055
  2. INSULIN [Concomitant]
  3. ACTOS [Concomitant]

REACTIONS (2)
  - CARDIAC FAILURE [None]
  - MALAISE [None]
